FAERS Safety Report 6347047-6 (Version None)
Quarter: 2009Q3

REPORT INFORMATION
  Report Type: 
  Country: None (occurrence: None)
  Receive Date: 20090909
  Receipt Date: 20090909
  Transmission Date: 20100115
  Serious: No
  Sender: FDA-Public Use
  Company Number: None

PATIENT
  Age: 75 Year
  Sex: Female

DRUGS (2)
  1. ZOMETA [Suspect]
  2. AROMASIN [Suspect]

REACTIONS (13)
  - AGEUSIA [None]
  - BONE PAIN [None]
  - FATIGUE [None]
  - FRACTURE [None]
  - GINGIVITIS [None]
  - HUMERUS FRACTURE [None]
  - HYPOAESTHESIA [None]
  - NO THERAPEUTIC RESPONSE [None]
  - OSTEONECROSIS [None]
  - PHLEBITIS [None]
  - TOOTH DISORDER [None]
  - TUMOUR MARKER INCREASED [None]
  - WEIGHT DECREASED [None]
